FAERS Safety Report 4732993-7 (Version None)
Quarter: 2005Q3

REPORT INFORMATION
  Report Type: 
  Country: None (occurrence: None)
  Receive Date: 20050725
  Receipt Date: 20040525
  Transmission Date: 20060218
  Serious: Yes (Life-Threatening)
  Sender: FDA-Public Use
  Company Number: WAES 0405USA01864

PATIENT
  Age: 45 Year
  Sex: Female

DRUGS (3)
  1. VIOXX [Suspect]
     Indication: ARTHRITIS
     Dosage: 25 MG/DAILY/PO
     Route: 048
     Dates: start: 20040501, end: 20040501
  2. MONOPRIL [Concomitant]
  3. PREVACID [Concomitant]

REACTIONS (1)
  - GASTRIC HAEMORRHAGE [None]
